FAERS Safety Report 8363733-0 (Version None)
Quarter: 2012Q2

REPORT INFORMATION
  Report Type: 
  Country: None (occurrence: None)
  Receive Date: 20120516
  Receipt Date: 20120504
  Transmission Date: 20120825
  Serious: Yes (Hospitalization)
  Sender: FDA-Public Use
  Company Number: NL-JNJFOC-20120513175

PATIENT
  Sex: Female

DRUGS (9)
  1. XARELTO [Suspect]
     Indication: THROMBOSIS PROPHYLAXIS
     Route: 048
     Dates: start: 20120315, end: 20120413
  2. ENALAPRIL MALEATE [Concomitant]
  3. GABAPENTIN [Concomitant]
     Dates: start: 20120315, end: 20120315
  4. HYDROCHLOROTHIAZIDE [Concomitant]
  5. ACETAMINOPHEN [Concomitant]
  6. PANTOPRAZOLE [Concomitant]
     Dates: start: 20120315, end: 20120317
  7. EUTHYROX [Concomitant]
  8. DICLOFENAC SODIUM [Suspect]
     Indication: PRODUCT USED FOR UNKNOWN INDICATION
     Dates: start: 20120315, end: 20120317
  9. METFORMIN HCL [Concomitant]

REACTIONS (1)
  - DIARRHOEA [None]
